FAERS Safety Report 20231530 (Version 2)
Quarter: 2022Q1

REPORT INFORMATION
  Report Type: Spontaneous
  Country: TH (occurrence: TH)
  Receive Date: 20211227
  Receipt Date: 20220105
  Transmission Date: 20220423
  Serious: No
  Sender: FDA-Public Use
  Company Number: TH-NOVARTISPH-NVSC2021TH288833

PATIENT
  Age: 52 Year
  Sex: Female

DRUGS (3)
  1. RIBOCICLIB [Suspect]
     Active Substance: RIBOCICLIB
     Indication: Breast disorder
     Dosage: 600 MG, QD (MG/DAY) (3 WK.ON 1 WK. OFF)
     Route: 065
  2. LETROZOLE [Suspect]
     Active Substance: LETROZOLE
     Indication: Breast disorder
     Dosage: 2.5 MG, QD (MG/DAY)
     Route: 065
  3. PACLITAXEL [Concomitant]
     Active Substance: PACLITAXEL
     Indication: Product used for unknown indication
     Dosage: 6 UNK, CYCLIC (6 CYCLES)
     Route: 065
     Dates: end: 201701

REACTIONS (6)
  - Neutrophil percentage increased [Unknown]
  - Platelet count decreased [Unknown]
  - Alanine aminotransferase increased [Unknown]
  - Aspartate aminotransferase increased [Unknown]
  - Haemoglobin decreased [Unknown]
  - White blood cell count decreased [Unknown]
